FAERS Safety Report 11409600 (Version 1)
Quarter: 2015Q3

REPORT INFORMATION
  Report Type: Report from Study
  Country: VE (occurrence: VE)
  Receive Date: 20150824
  Receipt Date: 20150824
  Transmission Date: 20151125
  Serious: Yes (Hospitalization, Other)
  Sender: FDA-Public Use
  Company Number: PHHY2014VE135419

PATIENT
  Sex: Female

DRUGS (5)
  1. MIFLONIDE [Suspect]
     Active Substance: BUDESONIDE
     Indication: ASTHMA
     Dosage: 160 MCG/5 MG (ONCE DAILY)
     Route: 055
  2. MIFLONIDE [Suspect]
     Active Substance: BUDESONIDE
     Dosage: 12 UG, QD
     Route: 065
  3. XOLAIR [Suspect]
     Active Substance: OMALIZUMAB
     Dosage: 600 MG, (EVERY 15 DAYS)
     Route: 058
     Dates: start: 201501
  4. XOLAIR [Suspect]
     Active Substance: OMALIZUMAB
     Indication: ASTHMA
     Dosage: 300 MG, QMO
     Route: 058
     Dates: start: 201409
  5. FORADIL [Suspect]
     Active Substance: FORMOTEROL FUMARATE
     Indication: ASTHMA
     Dosage: 400 UG, QD
     Route: 065

REACTIONS (2)
  - Asthma [Recovering/Resolving]
  - Asthmatic crisis [Not Recovered/Not Resolved]
